FAERS Safety Report 17332372 (Version 1)
Quarter: 2020Q1

REPORT INFORMATION
  Report Type: Spontaneous
  Country: FR (occurrence: FR)
  Receive Date: 20200128
  Receipt Date: 20200128
  Transmission Date: 20200409
  Serious: Yes (Hospitalization)
  Sender: FDA-Public Use
  Company Number: FR-ALLERGAN-2003174US

PATIENT
  Sex: Female
  Weight: 48 kg

DRUGS (3)
  1. LYSANXIA [Suspect]
     Active Substance: PRAZEPAM
     Indication: SUICIDE ATTEMPT
     Dosage: {TOTAL}
     Route: 048
     Dates: start: 20171005, end: 20171005
  2. ESCITALOPRAM OXALATE - BP [Suspect]
     Active Substance: ESCITALOPRAM OXALATE
     Indication: SUICIDE ATTEMPT
     Dosage: OVERDOSE: 230MG OF SEROPLEX{TOTAL}
     Route: 048
     Dates: start: 20171005, end: 20171005
  3. PARACETAMOL [Suspect]
     Active Substance: ACETAMINOPHEN
     Indication: SUICIDE ATTEMPT
     Dosage: {TOTAL}
     Route: 048
     Dates: start: 20171005, end: 20171005

REACTIONS (6)
  - Poisoning deliberate [Recovered/Resolved]
  - Malaise [Recovered/Resolved]
  - Somnolence [Recovered/Resolved]
  - Product administered to patient of inappropriate age [Unknown]
  - Loss of consciousness [Recovered/Resolved]
  - Intentional overdose [Recovered/Resolved]

NARRATIVE: CASE EVENT DATE: 20171005
